FAERS Safety Report 4515694-X (Version None)
Quarter: 2004Q4

REPORT INFORMATION
  Report Type: 
  Country: None (occurrence: None)
  Receive Date: 20041122
  Receipt Date: 20041103
  Transmission Date: 20050328
  Serious: Yes (Other)
  Sender: FDA-Public Use
  Company Number: 601541

PATIENT
  Age: 28 Month
  Sex: Male
  Weight: 15 kg

DRUGS (1)
  1. ADVATE (ANTIHEMOPHILIC FACTOR (RECOMBINANT), PLASMA/ ALBUMIN FREE METH [Suspect]
     Indication: FACTOR VIII DEFICIENCY
     Dosage: 5000 IU; CONTINUOUS; INTRAVENOUS
     Route: 042
     Dates: start: 20040803, end: 20040805

REACTIONS (2)
  - CENTRAL VENOUS CATHETERISATION [None]
  - FACTOR VIII INHIBITION [None]
